FAERS Safety Report 11552131 (Version 1)
Quarter: 2015Q3

REPORT INFORMATION
  Report Type: Spontaneous
  Country: US (occurrence: US)
  Receive Date: 20150903
  Receipt Date: 20150903
  Transmission Date: 20151125
  Serious: No
  Sender: FDA-Public Use
  Company Number: US-ELI_LILLY_AND_COMPANY-US201006003815

PATIENT
  Age: 65 Year
  Sex: Female
  Weight: 100.23 kg

DRUGS (13)
  1. PULMICORT TURBUHALER [Concomitant]
     Active Substance: BUDESONIDE
     Indication: NEPHROPATHY
     Dosage: UNK, 2/D
  2. PRAVACHOL [Concomitant]
     Active Substance: PRAVASTATIN SODIUM
     Dosage: 40 D/F, DAILY (1/D)
  3. HUMALOG MIX75/25 [Suspect]
     Active Substance: INSULIN LISPRO
     Indication: DIABETES MELLITUS
     Dosage: UNK, UNK
     Dates: start: 20050614, end: 20100607
  4. LOTENSIN [Concomitant]
     Active Substance: BENAZEPRIL HYDROCHLORIDE
     Indication: HYPERTENSION
     Dosage: 20 D/F, DAILY (1/D)
  5. LEVOXYL [Concomitant]
     Active Substance: LEVOTHYROXINE SODIUM
     Dosage: 175 D/F, DAILY (1/D)
  6. ALLEGRA [Concomitant]
     Active Substance: FEXOFENADINE HYDROCHLORIDE
     Indication: MULTIPLE ALLERGIES
     Dosage: 180 D/F, DAILY (1/D)
  7. PROTONIX [Concomitant]
     Active Substance: PANTOPRAZOLE SODIUM
     Indication: GASTROOESOPHAGEAL REFLUX DISEASE
     Dosage: 40 D/F, DAILY (1/D)
  8. HUMALOG MIX75/25 [Suspect]
     Active Substance: INSULIN LISPRO
     Dosage: 40 U, EACH EVENING
     Dates: start: 20100607
  9. MULTIVITAMIN [Concomitant]
     Active Substance: VITAMINS
  10. MINERAL SUPPLEMENTS [Concomitant]
     Active Substance: UNSPECIFIED INGREDIENT
  11. LASIX [Concomitant]
     Active Substance: FUROSEMIDE
     Indication: HYPERTENSION
     Dosage: 20 D/F, DAILY (1/D)
  12. HUMALOG MIX75/25 [Suspect]
     Active Substance: INSULIN LISPRO
     Dosage: 40 U, EACH MORNING
     Dates: start: 20100607
  13. CARDURA [Concomitant]
     Active Substance: DOXAZOSIN MESYLATE
     Indication: HYPERTENSION
     Dosage: 2 D/F, DAILY (1/D)

REACTIONS (5)
  - Malaise [Unknown]
  - Blood glucose increased [Unknown]
  - Renal injury [Unknown]
  - Poor quality drug administered [Recovered/Resolved]
  - Pain [Not Recovered/Not Resolved]

NARRATIVE: CASE EVENT DATE: 20100604
